FAERS Safety Report 14271652 (Version 1)
Quarter: 2017Q4

REPORT INFORMATION
  Report Type: Spontaneous
  Country: US (occurrence: US)
  Receive Date: 20171211
  Receipt Date: 20171211
  Transmission Date: 20180321
  Serious: Yes (Death, Hospitalization, Other)
  Sender: FDA-Public Use
  Company Number: US-MYLANLABS-2017M1076521

PATIENT
  Age: 15 Year
  Sex: Female
  Weight: 41 kg

DRUGS (2)
  1. LIDOCAINE. [Suspect]
     Active Substance: LIDOCAINE
     Indication: STOMATITIS
     Dosage: 2% LIDOCAINE IN 100ML BOTTLE, SHE HAD CONSUMED UP TO 2G (49 MG/KG) OF LIDOCAINE
     Route: 048
  2. LIDOCAINE. [Suspect]
     Active Substance: LIDOCAINE
     Dosage: 2%
     Route: 048

REACTIONS (4)
  - Brain herniation [Fatal]
  - Intentional overdose [Fatal]
  - Generalised tonic-clonic seizure [Fatal]
  - Cardiotoxicity [Fatal]
